FAERS Safety Report 22189991 (Version 1)
Quarter: 2023Q2

REPORT INFORMATION
  Report Type: Spontaneous
  Country: GB (occurrence: GB)
  Receive Date: 20230410
  Receipt Date: 20230410
  Transmission Date: 20230722
  Serious: Yes (Other)
  Sender: FDA-Public Use
  Company Number: GB-MHRA-MED-202303312126182940-YVKWG

PATIENT
  Age: 19 Year
  Sex: Female
  Weight: 50 kg

DRUGS (2)
  1. MIRTAZAPINE [Suspect]
     Active Substance: MIRTAZAPINE
     Indication: Bipolar II disorder
     Dosage: 30 MG FORMERLY 15 MG; ;
     Dates: start: 20220516
  2. QUETIAPINE [Concomitant]
     Active Substance: QUETIAPINE
     Indication: Bipolar II disorder
     Dosage: UNK
     Dates: start: 202202

REACTIONS (1)
  - Muscle spasms [Not Recovered/Not Resolved]

NARRATIVE: CASE EVENT DATE: 20220516
